FAERS Safety Report 6289853-2 (Version None)
Quarter: 2009Q3

REPORT INFORMATION
  Report Type: 
  Country: None (occurrence: None)
  Receive Date: 20090730
  Receipt Date: 20080821
  Transmission Date: 20100115
  Serious: Yes (Other)
  Sender: FDA-Public Use
  Company Number: US-BRISTOL-MYERS SQUIBB COMPANY-14310072

PATIENT
  Age: 74 Year
  Sex: Female
  Weight: 64 kg

DRUGS (2)
  1. COUMADIN [Suspect]
     Indication: THROMBOSIS
     Dates: start: 20080728, end: 20080730
  2. LOVENOX [Suspect]
     Indication: THROMBOSIS
     Dates: start: 20080728, end: 20080730

REACTIONS (1)
  - INTERNATIONAL NORMALISED RATIO INCREASED [None]
